FAERS Safety Report 18280426 (Version 2)
Quarter: 2021Q1

REPORT INFORMATION
  Report Type: Spontaneous
  Country: US (occurrence: US)
  Receive Date: 20200917
  Receipt Date: 20210318
  Transmission Date: 20210419
  Serious: Yes (Other)
  Sender: FDA-Public Use
  Company Number: US-GILEAD-2020-0494512

PATIENT
  Age: 37 Year
  Sex: Female
  Weight: 56.24 kg

DRUGS (19)
  1. VIREAD [Suspect]
     Active Substance: TENOFOVIR DISOPROXIL FUMARATE
     Indication: HIV INFECTION
     Dosage: UNK
     Route: 048
     Dates: start: 2002, end: 2007
  2. TRIUMEQ [Concomitant]
     Active Substance: ABACAVIR SULFATE\DOLUTEGRAVIR SODIUM\LAMIVUDINE
  3. NIACIN. [Concomitant]
     Active Substance: NIACIN
  4. TYLENOL [Concomitant]
     Active Substance: ACETAMINOPHEN
  5. VELPHORO [Concomitant]
     Active Substance: SUCROFERRIC OXYHYDROXIDE
  6. EPOGEN [Concomitant]
     Active Substance: ERYTHROPOIETIN
  7. TEGRETOL [Concomitant]
     Active Substance: CARBAMAZEPINE
  8. KEPPRA [Concomitant]
     Active Substance: LEVETIRACETAM
  9. EPIVIR [Concomitant]
     Active Substance: LAMIVUDINE
  10. RETROVIR [Concomitant]
     Active Substance: ZIDOVUDINE
  11. TIVICAY [Concomitant]
     Active Substance: DOLUTEGRAVIR SODIUM
  12. LISINOPRIL. [Concomitant]
     Active Substance: LISINOPRIL
  13. EPZICOM [Concomitant]
     Active Substance: ABACAVIR SULFATE\LAMIVUDINE
  14. LEXIVA [Concomitant]
     Active Substance: FOSAMPRENAVIR CALCIUM
  15. ZIAGEN [Concomitant]
     Active Substance: ABACAVIR SULFATE
  16. CARVEDILOL. [Concomitant]
     Active Substance: CARVEDILOL
  17. NORVIR [Concomitant]
     Active Substance: RITONAVIR
  18. MAGNESIUM [Concomitant]
     Active Substance: MAGNESIUM
  19. VITAMIN K [CALCIUM PHOSPHATE DIBASIC;PHYTOMENADIONE] [Concomitant]

REACTIONS (5)
  - Chronic kidney disease [Not Recovered/Not Resolved]
  - Anaemia [Not Recovered/Not Resolved]
  - Seizure [Recovered/Resolved]
  - Renal transplant [Recovered/Resolved]
  - End stage renal disease [Not Recovered/Not Resolved]

NARRATIVE: CASE EVENT DATE: 2004
